FAERS Safety Report 21328165 (Version 21)
Quarter: 2024Q2

REPORT INFORMATION
  Report Type: Spontaneous
  Country: CA (occurrence: CA)
  Receive Date: 20220913
  Receipt Date: 20240529
  Transmission Date: 20240715
  Serious: Yes (Other)
  Sender: FDA-Public Use
  Company Number: CA-CELLTRION INC.-2022CA009031

PATIENT

DRUGS (53)
  1. INFLECTRA [Suspect]
     Active Substance: INFLIXIMAB-DYYB
     Indication: Crohn^s disease
     Dosage: 300 MG, Q 0, 2, 6, EVERY 8 WEEKS
     Route: 042
     Dates: start: 20220330
  2. INFLECTRA [Suspect]
     Active Substance: INFLIXIMAB-DYYB
     Dosage: 300 MG, Q 0, 2, 6, EVERY 8 WEEKS
     Route: 042
     Dates: start: 20220412
  3. INFLECTRA [Suspect]
     Active Substance: INFLIXIMAB-DYYB
     Dosage: 300 MG, Q 0, 2, 6, EVERY 8 WEEKS
     Route: 042
     Dates: start: 20220512
  4. INFLECTRA [Suspect]
     Active Substance: INFLIXIMAB-DYYB
     Dosage: 300 MG EVERY 8 WEEKS
     Route: 042
     Dates: start: 20220706
  5. INFLECTRA [Suspect]
     Active Substance: INFLIXIMAB-DYYB
     Dosage: 300 MG EVERY 8 WEEKS
     Route: 042
     Dates: start: 20220706
  6. INFLECTRA [Suspect]
     Active Substance: INFLIXIMAB-DYYB
     Dosage: 300 MG EVERY 8 WEEKS
     Route: 042
     Dates: start: 20220831
  7. INFLECTRA [Suspect]
     Active Substance: INFLIXIMAB-DYYB
     Dosage: 300 MG EVERY 8 WEEKS
     Route: 042
     Dates: start: 20220831
  8. INFLECTRA [Suspect]
     Active Substance: INFLIXIMAB-DYYB
     Dosage: 300 MG EVERY 8 WEEKS
     Route: 042
     Dates: start: 20220928
  9. INFLECTRA [Suspect]
     Active Substance: INFLIXIMAB-DYYB
     Dosage: 300 MG EVERY 8 WEEKS
     Route: 042
     Dates: start: 20221026
  10. INFLECTRA [Suspect]
     Active Substance: INFLIXIMAB-DYYB
     Dosage: 300 MG EVERY 8 WEEKS
     Route: 042
     Dates: start: 20221026
  11. INFLECTRA [Suspect]
     Active Substance: INFLIXIMAB-DYYB
     Dosage: 300 MG EVERY 8 WEEKS
     Route: 042
     Dates: start: 20221228
  12. INFLECTRA [Suspect]
     Active Substance: INFLIXIMAB-DYYB
     Dosage: 300 MG EVERY 8 WEEKS
     Route: 042
     Dates: start: 20221228
  13. INFLECTRA [Suspect]
     Active Substance: INFLIXIMAB-DYYB
     Dosage: 300 MG EVERY 8 WEEKS
     Route: 042
     Dates: start: 20230222
  14. INFLECTRA [Suspect]
     Active Substance: INFLIXIMAB-DYYB
     Dosage: 300 MG EVERY 8 WEEKS
     Route: 042
     Dates: start: 20230419
  15. INFLECTRA [Suspect]
     Active Substance: INFLIXIMAB-DYYB
     Dosage: 300 MG EVERY 8 WEEKS
     Route: 042
     Dates: start: 20230614
  16. INFLECTRA [Suspect]
     Active Substance: INFLIXIMAB-DYYB
     Dosage: 300 MG, EVERY 8 WEEKS
     Route: 042
     Dates: start: 20230614
  17. INFLECTRA [Suspect]
     Active Substance: INFLIXIMAB-DYYB
     Dosage: 300 MG, EVERY 8 WEEKS
     Route: 042
     Dates: start: 20230809
  18. INFLECTRA [Suspect]
     Active Substance: INFLIXIMAB-DYYB
     Dosage: 300 MG, EVERY 8 WEEKS
     Route: 042
     Dates: start: 20231004
  19. INFLECTRA [Suspect]
     Active Substance: INFLIXIMAB-DYYB
     Dosage: 300 MG (100 MG VIAL, 3 UNITS), EVERY 8 WEEKS
     Route: 042
     Dates: start: 20231206
  20. INFLECTRA [Suspect]
     Active Substance: INFLIXIMAB-DYYB
     Dosage: 300 MG (100 MG VIAL, 3 UNITS), EVERY 8 WEEKS
     Route: 042
     Dates: start: 20231206
  21. INFLECTRA [Suspect]
     Active Substance: INFLIXIMAB-DYYB
     Dosage: 300 MG, EVERY 8 WEEKS
     Route: 042
     Dates: start: 20240129
  22. INFLECTRA [Suspect]
     Active Substance: INFLIXIMAB-DYYB
     Dosage: 300 MG, EVERY 8 WEEKS
     Route: 042
     Dates: start: 20240327
  23. INFLECTRA [Suspect]
     Active Substance: INFLIXIMAB-DYYB
     Dosage: 300 MG, EVERY 8 WEEKS
     Route: 042
     Dates: start: 20240327
  24. INFLECTRA [Suspect]
     Active Substance: INFLIXIMAB-DYYB
     Dosage: 300 MG, EVERY 8 WEEKS
     Route: 042
     Dates: start: 20240327
  25. BUTYLSCOPOLAMINE BROMIDE [Concomitant]
     Active Substance: BUTYLSCOPOLAMINE BROMIDE
     Dosage: 10 MG, AS NEEDED, EVERY 1 TABLET (S), 6-8 HRS PRN
  26. ENTOCORT [Concomitant]
     Active Substance: BUDESONIDE
     Indication: Crohn^s disease
     Dosage: 9 MG, 1X/DAY
     Route: 048
  27. ENTOCORT [Concomitant]
     Active Substance: BUDESONIDE
     Dosage: 9 MG, 1X/DAY, STOPPED 3-4 WEEKS AGO,
     Route: 048
  28. FLUCONAZOLE [Concomitant]
     Active Substance: FLUCONAZOLE
     Dosage: UNK (OCCASIONAL)
  29. MESALAMINE [Concomitant]
     Active Substance: MESALAMINE
     Dosage: 4.8 G
  30. MESALAMINE [Concomitant]
     Active Substance: MESALAMINE
     Dosage: UNK, 1X/DAY ((L2 G TABLET EC, 4 TABLET(S), QD)
  31. MESALAMINE [Concomitant]
     Active Substance: MESALAMINE
     Dosage: 4.8 G, 1X/DAY (1.2 G TABLET EC, 4 TABLET(S), QD (EVERY DAY))
  32. MESALAMINE [Concomitant]
     Active Substance: MESALAMINE
     Dosage: 4 DF, 1X/DAY (1.2 G TABLET EC, 4 TABLET(S), QD)
  33. MESALAMINE [Concomitant]
     Active Substance: MESALAMINE
     Dosage: 1.2 G, DAILY, TABLET EC, 4 TABLET(S), QD
  34. CHOLESTYRAMINE [Concomitant]
     Active Substance: CHOLESTYRAMINE
     Dosage: UNK, 4 G/5 G POWDER PACKET, 1 PACKET, AS NEEDED
  35. CHOLESTYRAMINE [Concomitant]
     Active Substance: CHOLESTYRAMINE
     Dosage: UNK, 3X/DAY (4 G/5 G POWDER PACKET, 1 PACKET(S), TID PRN (THREE TIMES A DAY AS NEEDED))
  36. CHOLESTYRAMINE [Concomitant]
     Active Substance: CHOLESTYRAMINE
     Dosage: UNK UNK, AS NEEDED, G/5 G POWDER PACKET. 1 PACKET(S). TID PRN
  37. CHOLESTYRAMINE [Concomitant]
     Active Substance: CHOLESTYRAMINE
     Dosage: UNK, 3X/DAY (4 G/5 G POWDER PACKET, 1 PACKET(S), TID PRN (THREE TIMES A DAY AS NEEDED))
  38. PREDNISONE [Concomitant]
     Active Substance: PREDNISONE
     Indication: Immunosuppression
     Dosage: 12.5 MG, DAILY
  39. PREDNISONE [Concomitant]
     Active Substance: PREDNISONE
     Indication: Crohn^s disease
     Dosage: 20 MG, DAILY
     Route: 048
  40. PREDNISONE [Concomitant]
     Active Substance: PREDNISONE
     Dosage: 15 MG (Q2D (TAPERING DOWN))
     Route: 048
  41. PREDNISONE [Concomitant]
     Active Substance: PREDNISONE
     Dosage: 7.5 MG (PO Q 2 DAYS)
     Route: 048
  42. PREDNISONE [Concomitant]
     Active Substance: PREDNISONE
     Dosage: TAPERING
  43. PREDNISONE [Concomitant]
     Active Substance: PREDNISONE
     Dosage: 7.5 MG (PO Q 2 DAYS)
     Route: 048
  44. PREDNISONE [Concomitant]
     Active Substance: PREDNISONE
     Dosage: 2.5 MG, 1X/DAY, OD
     Route: 048
     Dates: start: 20221228, end: 20230318
  45. PREDNISONE [Concomitant]
     Active Substance: PREDNISONE
     Dosage: UNK
     Route: 048
     Dates: end: 20230318
  46. RIFAXIMIN [Concomitant]
     Active Substance: RIFAXIMIN
     Indication: Clostridium difficile infection
     Dosage: LONG TERM
     Route: 048
  47. RIFAXIMIN [Concomitant]
     Active Substance: RIFAXIMIN
     Dosage: UNK, ALTERNATE DAY
  48. RIFAXIMIN [Concomitant]
     Active Substance: RIFAXIMIN
     Dosage: UNK (INCREASED DOSE)
     Route: 048
  49. RIFAXIMIN [Concomitant]
     Active Substance: RIFAXIMIN
     Dosage: 2 DF, DAILY
     Route: 048
  50. VANCOMYCIN [Concomitant]
     Active Substance: VANCOMYCIN
     Indication: Clostridium difficile infection
     Dosage: PO, LONG TERM
     Route: 048
  51. VANCOMYCIN [Concomitant]
     Active Substance: VANCOMYCIN
     Dosage: UNK, 8 PER DAY
  52. VANCOMYCIN [Concomitant]
     Active Substance: VANCOMYCIN
     Dosage: UNK, 4 ALTERNATE DAY
  53. VANCOMYCIN [Concomitant]
     Active Substance: VANCOMYCIN
     Dosage: 12 PILLS, DAILY
     Route: 048

REACTIONS (32)
  - Cataract [Not Recovered/Not Resolved]
  - Clostridium difficile infection [Not Recovered/Not Resolved]
  - Therapeutic response shortened [Unknown]
  - Asthenia [Not Recovered/Not Resolved]
  - Muscle spasms [Not Recovered/Not Resolved]
  - Arthritis [Unknown]
  - Eye inflammation [Unknown]
  - Decreased appetite [Not Recovered/Not Resolved]
  - Gastrointestinal motility disorder [Not Recovered/Not Resolved]
  - Respiratory tract congestion [Unknown]
  - Low lung compliance [Unknown]
  - Cough [Recovered/Resolved]
  - Stress [Unknown]
  - Serum ferritin decreased [Not Recovered/Not Resolved]
  - Weight decreased [Unknown]
  - Drug level abnormal [Unknown]
  - Psoriasis [Recovered/Resolved]
  - Oral herpes [Not Recovered/Not Resolved]
  - Fatigue [Not Recovered/Not Resolved]
  - Dry skin [Unknown]
  - Rash [Unknown]
  - Nausea [Not Recovered/Not Resolved]
  - Pruritus [Unknown]
  - Arthralgia [Recovered/Resolved with Sequelae]
  - Condition aggravated [Recovered/Resolved]
  - Headache [Not Recovered/Not Resolved]
  - Dizziness [Unknown]
  - Blood iron decreased [Unknown]
  - Night sweats [Not Recovered/Not Resolved]
  - Feeling abnormal [Recovered/Resolved]
  - Stomatitis [Recovered/Resolved]
  - Inappropriate schedule of product administration [Unknown]

NARRATIVE: CASE EVENT DATE: 20220101
